FAERS Safety Report 9638342 (Version 2)
Quarter: 2013Q4

REPORT INFORMATION
  Report Type: Spontaneous
  Country: US (occurrence: US)
  Receive Date: 20131022
  Receipt Date: 20131022
  Transmission Date: 20140711
  Serious: No
  Sender: FDA-Public Use
  Company Number: US-MYLANLABS-2012S1021095

PATIENT
  Age: 72 Year
  Sex: Male
  Weight: 88 kg

DRUGS (7)
  1. MIDODRINE HYDROCHLORIDE TABLETS [Suspect]
     Indication: ORTHOSTATIC HYPOTENSION
     Route: 048
     Dates: start: 20120809, end: 20120923
  2. MIDODRINE HYDROCHLORIDE TABLETS [Suspect]
     Indication: HYPOTENSION
     Route: 048
     Dates: start: 20120809, end: 20120923
  3. ADVAIR [Concomitant]
  4. METFORMIN HCL [Concomitant]
     Indication: DIABETES MELLITUS
     Route: 048
  5. PREVACID [Concomitant]
     Route: 048
  6. FLUDROCORTISONE [Concomitant]
     Indication: ORTHOSTATIC HYPOTENSION
  7. AVODART [Concomitant]

REACTIONS (4)
  - Visual impairment [Not Recovered/Not Resolved]
  - Urinary retention [Recovered/Resolved]
  - Dysuria [Recovered/Resolved]
  - Condition aggravated [Recovered/Resolved]
